FAERS Safety Report 9297978 (Version 3)
Quarter: 2014Q1

REPORT INFORMATION
  Report Type: Spontaneous
  Country: US (occurrence: US)
  Receive Date: 20130520
  Receipt Date: 20140220
  Transmission Date: 20141002
  Serious: Yes (Other)
  Sender: FDA-Public Use
  Company Number: US-PFIZER INC-2013154403

PATIENT
  Age: 60 Year
  Sex: Female

DRUGS (6)
  1. RELPAX [Suspect]
     Indication: MIGRAINE
     Dosage: 40 MG, AS NEEDED
  2. CODEINE [Suspect]
     Indication: MIGRAINE
     Dosage: UNK
  3. PERCOCET [Suspect]
     Indication: MIGRAINE
     Dosage: UNK
  4. IMITREX [Suspect]
     Indication: MIGRAINE
     Dosage: UNK
  5. LEVOTHYROXINE [Concomitant]
     Indication: HYPOTHYROIDISM
     Dosage: 88 MCG DAILY
  6. THYROXINE SODIUM [Concomitant]
     Dosage: UNK

REACTIONS (9)
  - Spinal fracture [Recovered/Resolved]
  - Intervertebral disc protrusion [Unknown]
  - Road traffic accident [Unknown]
  - Sternal fracture [Unknown]
  - Spinal disorder [Unknown]
  - Weight increased [Unknown]
  - Drug ineffective [Unknown]
  - Migraine [Unknown]
  - Blood cholesterol increased [Unknown]
